FAERS Safety Report 24783015 (Version 1)
Quarter: 2024Q4

REPORT INFORMATION
  Report Type: Spontaneous
  Country: DE (occurrence: DE)
  Receive Date: 20241227
  Receipt Date: 20241227
  Transmission Date: 20250115
  Serious: Yes (Hospitalization)
  Sender: FRESENIUS KABI
  Company Number: DE-ROCHE-10000160137

PATIENT
  Age: 60 Year
  Sex: Male
  Weight: 69.5 kg

DRUGS (5)
  1. LEUCOVORIN [Suspect]
     Active Substance: LEUCOVORIN\LEUCOVORIN CALCIUM
     Indication: Gastrooesophageal cancer
     Dosage: ON 10-DEC-2024 RECEIVED THE LAST DOSE OF LEUCOVORIN (400 MG) PRIOR TO AE.
     Route: 065
     Dates: start: 20241210
  2. OXALIPLATIN [Suspect]
     Active Substance: OXALIPLATIN
     Indication: Gastrooesophageal cancer
     Dosage: ON 10/12/2024 RECEIVED THE LAST DOSE OF OXALIPLATIN 170 MG PRIOR TO AE.
     Route: 065
     Dates: start: 20241210
  3. ATEZOLIZUMAB [Suspect]
     Active Substance: ATEZOLIZUMAB
     Indication: Gastrooesophageal cancer
     Dosage: 840 MG (C1-C8)/ 1200 MG (C9-C16). ON 10-DEC-2024 LAST DOSE OF ATEZOLIZUMAB GIVEN PRIOR TO AE.
     Route: 065
     Dates: start: 20241210
  4. DOCETAXEL [Suspect]
     Active Substance: DOCETAXEL
     Indication: Gastrooesophageal cancer
     Dosage: ON 10/12/2024 RECEIVED THE LAST DOSE OF DOCETAXEL 100 MG PRIOR TO AE.
     Route: 065
     Dates: start: 20241210
  5. FLUOROURACIL [Suspect]
     Active Substance: FLUOROURACIL
     Indication: Gastrooesophageal cancer
     Dosage: ON 10-DEC-2024 RECEIVED THE LAST DOSE OF 5 FU (5200 MG) PRIOR TO AE
     Route: 065
     Dates: start: 20241210

REACTIONS (1)
  - Pancreatitis [Recovering/Resolving]

NARRATIVE: CASE EVENT DATE: 20241215
